FAERS Safety Report 9330266 (Version 2)
Quarter: 2013Q2

REPORT INFORMATION
  Report Type: Report from Study
  Country: CA (occurrence: CA)
  Receive Date: 20130605
  Receipt Date: 20130625
  Transmission Date: 20140414
  Serious: Yes (Hospitalization)
  Sender: FDA-Public Use
  Company Number: CA-ROCHE-1232435

PATIENT
  Sex: Male
  Weight: 102 kg

DRUGS (8)
  1. RITUXAN [Suspect]
     Indication: IDIOPATHIC THROMBOCYTOPENIC PURPURA
     Route: 042
     Dates: start: 20130509
  2. RITUXAN [Suspect]
     Indication: OFF LABEL USE
  3. DANAZOL [Concomitant]
  4. DEXAMETHASONE [Concomitant]
  5. LEVOTHYROXINE [Concomitant]
  6. AZATHIOPRINE [Concomitant]
  7. TRANEXAMIC ACID [Concomitant]
  8. PANTOPRAZOLE [Concomitant]

REACTIONS (1)
  - Cerebral haemorrhage [Unknown]
